FAERS Safety Report 25453899 (Version 1)
Quarter: 2025Q2

REPORT INFORMATION
  Report Type: Spontaneous
  Country: US (occurrence: US)
  Receive Date: 20250619
  Receipt Date: 20250619
  Transmission Date: 20250716
  Serious: No
  Sender: SANOFI AVENTIS
  Company Number: US-SA-2025SA172028

PATIENT
  Age: 20 Year
  Sex: Female

DRUGS (1)
  1. DUPIXENT [Suspect]
     Active Substance: DUPILUMAB
     Indication: Asthma
     Dosage: 300 MG, QOW
     Route: 058
     Dates: start: 20250227

REACTIONS (7)
  - Sinusitis [Unknown]
  - Respiratory tract infection [Unknown]
  - Pulmonary pain [Unknown]
  - Back pain [Unknown]
  - Insomnia [Unknown]
  - Cough [Unknown]
  - Sputum abnormal [Unknown]

NARRATIVE: CASE EVENT DATE: 20250601
